FAERS Safety Report 13868237 (Version 3)
Quarter: 2024Q1

REPORT INFORMATION
  Report Type: Spontaneous
  Country: US (occurrence: US)
  Receive Date: 20170815
  Receipt Date: 20240131
  Transmission Date: 20240409
  Serious: Yes (Other)
  Sender: FDA-Public Use
  Company Number: US-BIOGEN-2017BI00445850

PATIENT
  Sex: Female

DRUGS (1)
  1. TYSABRI [Suspect]
     Active Substance: NATALIZUMAB
     Indication: Multiple sclerosis
     Dosage: INFUSED OVER 1 HOUR
     Route: 050
     Dates: start: 20151201, end: 20231009

REACTIONS (7)
  - Crohn^s disease [Unknown]
  - Dilated cardiomyopathy [Unknown]
  - Cardiovascular symptom [Unknown]
  - Hypoaesthesia [Unknown]
  - Product dose omission issue [Unknown]
  - Muscle spasms [Unknown]
  - Fatigue [Unknown]
